FAERS Safety Report 24753165 (Version 1)
Quarter: 2024Q4

REPORT INFORMATION
  Report Type: Spontaneous
  Country: US (occurrence: US)
  Receive Date: 20241219
  Receipt Date: 20241219
  Transmission Date: 20250114
  Serious: No
  Sender: PACIRA
  Company Number: US-ORG100016242-2023000343

PATIENT

DRUGS (4)
  1. EXPAREL [Suspect]
     Active Substance: BUPIVACAINE
     Indication: Nerve block
     Dosage: 20 ML ADMIXED WITH 10 ML OF 0.25% BUPIVACAINE
     Route: 050
     Dates: start: 20231206, end: 20231206
  2. EXPAREL [Suspect]
     Active Substance: BUPIVACAINE
     Indication: Nerve block
     Dosage: 10 ML ADMIXED WITH 15 ML OF 0.25% BUPIVACAINE
     Route: 050
     Dates: start: 20231206, end: 20231206
  3. BUPIVACAINE [Suspect]
     Active Substance: BUPIVACAINE
     Indication: Nerve block
     Dosage: 20 ML EXPAREL ADMIXED WITH 10 ML OF 0.25% BUPIVACAINE
     Route: 050
     Dates: start: 20231206, end: 20231206
  4. BUPIVACAINE [Suspect]
     Active Substance: BUPIVACAINE
     Indication: Nerve block
     Dosage: 10 ML EXPAREL ADMIXED WITH 15 ML OF 0.25% BUPIVACAINE
     Route: 050
     Dates: start: 20231206, end: 20231206

REACTIONS (2)
  - No adverse event [Unknown]
  - Product use issue [Unknown]

NARRATIVE: CASE EVENT DATE: 20231206
